FAERS Safety Report 5076630-3 (Version None)
Quarter: 2006Q3

REPORT INFORMATION
  Report Type: 
  Country: None (occurrence: None)
  Receive Date: 20060725
  Receipt Date: 20060207
  Transmission Date: 20061208
  Serious: No
  Sender: FDA-Public Use
  Company Number: 200610731BWH

PATIENT
  Age: 85 Year
  Sex: Female

DRUGS (11)
  1. NEXAVAR [Suspect]
     Indication: RENAL CANCER METASTATIC
     Dosage: 400 MG, BID, ORAL
     Route: 048
     Dates: start: 20060202, end: 20060208
  2. DIOVAN [Concomitant]
  3. CLONIDINE [Concomitant]
  4. POTASSIUM [Concomitant]
  5. COUMADIN [Concomitant]
  6. MAGNESIUM [Concomitant]
  7. SPIRONOLACT [Concomitant]
  8. ZILPRAZEM ER [Concomitant]
  9. ASCORBIC ACID [Concomitant]
  10. MULTI-VITAMIN [Concomitant]
  11. BLOOD PRESSURE MEDICATION (NOS) [Concomitant]

REACTIONS (10)
  - ANOREXIA [None]
  - BLISTER [None]
  - BLOOD URINE PRESENT [None]
  - CHROMATURIA [None]
  - ORAL MUCOSAL DISORDER [None]
  - ORAL PAIN [None]
  - PAIN OF SKIN [None]
  - RASH [None]
  - RASH GENERALISED [None]
  - RASH PRURITIC [None]
